FAERS Safety Report 17659371 (Version 2)
Quarter: 2020Q4

REPORT INFORMATION
  Report Type: Report from Study
  Country: GB (occurrence: GB)
  Receive Date: 20200413
  Receipt Date: 20201026
  Transmission Date: 20210113
  Serious: Yes (Death, Hospitalization, Other)
  Sender: FDA-Public Use
  Company Number: GB-TEVA-2020-GB-1221537

PATIENT
  Age: 66 Year
  Sex: Female

DRUGS (24)
  1. LAXIDO [Concomitant]
     Active Substance: POLYETHYLENE GLYCOL 3350\POTASSIUM CHLORIDE\SODIUM BICARBONATE\SODIUM CHLORIDE
     Indication: CONSTIPATION
     Route: 048
     Dates: start: 20120813, end: 20160908
  2. DOCUSATE SODIUM. [Concomitant]
     Active Substance: DOCUSATE SODIUM
     Dosage: 200 MG
     Route: 048
     Dates: end: 20160908
  3. TRAMADOL. [Concomitant]
     Active Substance: TRAMADOL
     Indication: PAIN
     Dosage: AS NEEDED. 50 MG
     Route: 048
     Dates: end: 20160908
  4. TRASTUZUMAB. [Suspect]
     Active Substance: TRASTUZUMAB
     Indication: BREAST CANCER METASTATIC
     Dosage: INJECTION, SOLUTION, 600  MG PER 3 WEEKS
     Route: 058
     Dates: start: 20151005, end: 20160908
  5. ADCAL D3 [Concomitant]
     Active Substance: CALCIUM CARBONATE\CHOLECALCIFEROL
     Route: 048
     Dates: end: 20160908
  6. CAPECITABINE. [Suspect]
     Active Substance: CAPECITABINE
     Dosage: UNKNOWN, 1500 MG
     Route: 048
     Dates: start: 20160603, end: 20160623
  7. ASPIRIN [ACETYLSALICYLIC ACID] [Concomitant]
     Active Substance: ASPIRIN
     Dosage: 75 MG
     Route: 048
     Dates: end: 20160908
  8. ATORVASTATIN [Concomitant]
     Active Substance: ATORVASTATIN
     Dosage: 40 MG
     Route: 048
     Dates: end: 20160908
  9. LAXIDO [Concomitant]
     Active Substance: POLYETHYLENE GLYCOL 3350\POTASSIUM CHLORIDE\SODIUM BICARBONATE\SODIUM CHLORIDE
     Route: 048
     Dates: start: 20160809, end: 20160809
  10. CAPECITABINE. [Suspect]
     Active Substance: CAPECITABINE
     Indication: BREAST CANCER METASTATIC
     Dosage: 1800 MG
     Route: 048
     Dates: start: 20160401, end: 20160603
  11. TAMOXIFEN [Suspect]
     Active Substance: TAMOXIFEN
     Indication: BREAST CANCER METASTATIC
     Dosage: UNKNOWN, 20 MG
     Route: 048
     Dates: start: 20160708, end: 20160908
  12. VINORELBINE [Suspect]
     Active Substance: VINORELBINE TARTRATE
     Dosage: UNIT DOSE : 140 MG
     Route: 048
     Dates: start: 20151113, end: 20151120
  13. ACYCLOVIR [ACICLOVIR] [Concomitant]
     Active Substance: ACYCLOVIR
     Dosage: 5 PERCENT
     Route: 061
     Dates: start: 20020108, end: 20020113
  14. CAPECITABINE. [Suspect]
     Active Substance: CAPECITABINE
     Dosage: UNKNOWN, 1800 MG
     Route: 048
     Dates: start: 20160331
  15. VINORELBINE [Suspect]
     Active Substance: VINORELBINE TARTRATE
     Indication: BREAST CANCER METASTATIC
     Dosage: UNIT DOSE : 150 MG
     Route: 048
     Dates: start: 20160122, end: 20160318
  16. VINORELBINE [Suspect]
     Active Substance: VINORELBINE TARTRATE
     Dosage: UNIT DOSE  : 110 MG
     Route: 048
     Dates: start: 20151002, end: 20151030
  17. OMEPRAZOLE. [Concomitant]
     Active Substance: OMEPRAZOLE
     Indication: PROPHYLAXIS
     Dosage: 40 MG
     Route: 048
     Dates: end: 20160908
  18. OMEPRAZOLE. [Concomitant]
     Active Substance: OMEPRAZOLE
     Indication: GASTRIC POLYPS
  19. OXYCODONE [Concomitant]
     Active Substance: OXYCODONE
     Dosage: AS NEEDED. 5 MG
     Route: 048
     Dates: end: 20160908
  20. DENOSUMAB [Concomitant]
     Active Substance: DENOSUMAB
     Dosage: 120 MG, MONTHLY
     Route: 058
     Dates: end: 20160824
  21. PYRIDOXINE [Concomitant]
     Active Substance: PYRIDOXINE
     Dosage: TO MITIGATE POTENTIAL NEUROLOGICAL SIDE EFFECTS OF CHEMOTHERAPY , 500 MG
     Route: 048
     Dates: start: 20160525, end: 20160908
  22. GABAPENTIN. [Concomitant]
     Active Substance: GABAPENTIN
     Dosage: 300 MG
     Route: 048
     Dates: end: 20160908
  23. VINORELBINE [Suspect]
     Active Substance: VINORELBINE TARTRATE
     Dosage: UNIT DOSE : 140 MG
     Route: 048
     Dates: start: 20151230, end: 20160115
  24. VINORELBINE [Suspect]
     Active Substance: VINORELBINE TARTRATE
     Dosage: UNIT DOSE : 150 MG
     Route: 048
     Dates: start: 20151204, end: 20151223

REACTIONS (17)
  - Hypoglycaemia [Recovered/Resolved]
  - Arthralgia [Recovered/Resolved]
  - Fatigue [Unknown]
  - Fatigue [Recovered/Resolved]
  - Death [Fatal]
  - Lymphadenopathy [Recovered/Resolved]
  - Oral pain [Recovered/Resolved]
  - Lower respiratory tract infection [Recovered/Resolved]
  - Dyspnoea exertional [Recovered/Resolved]
  - Hepatic pain [Recovered/Resolved]
  - Lymphoedema [Recovered/Resolved]
  - Dizziness [Not Recovered/Not Resolved]
  - Mucosal inflammation [Recovered/Resolved]
  - Sepsis [Recovered/Resolved]
  - Palmar-plantar erythrodysaesthesia syndrome [Unknown]
  - Constipation [Recovered/Resolved]
  - Cough [Recovered/Resolved]

NARRATIVE: CASE EVENT DATE: 20160211
